FAERS Safety Report 7479860-6 (Version None)
Quarter: 2011Q2

REPORT INFORMATION
  Report Type: 
  Country: None (occurrence: None)
  Receive Date: 20110515
  Receipt Date: 20110316
  Transmission Date: 20111010
  Serious: No
  Sender: FDA-Public Use
  Company Number: US-NOVEN-11US002018

PATIENT
  Sex: Female
  Weight: 54.422 kg

DRUGS (7)
  1. DILANTIN [Concomitant]
     Indication: CONVULSION
     Dosage: 100 MG, UNKNOWN
     Route: 048
     Dates: start: 19910101
  2. PHENOBARBITAL TAB [Concomitant]
     Indication: CONVULSION
     Dosage: 30 MG, BID
     Route: 048
     Dates: start: 19910101
  3. BUPROPION [Concomitant]
     Indication: DEPRESSION
     Dosage: 150 MG, QD
     Route: 048
     Dates: start: 20110101
  4. SIMVASTATIN [Concomitant]
     Indication: BLOOD CHOLESTEROL INCREASED
     Dosage: 40 MG, QD
     Route: 048
     Dates: start: 19860101
  5. LORAZEPAM [Concomitant]
     Indication: ANXIETY
     Dosage: 0.5 MG, PRN
     Route: 048
  6. DAYTRANA [Suspect]
     Indication: ATTENTION DEFICIT/HYPERACTIVITY DISORDER
     Dosage: 30 MG, UNKNOWN
     Route: 062
     Dates: start: 20070101
  7. OMEPRAZOLE [Concomitant]
     Indication: DYSPEPSIA
     Dosage: 20 MG, QD
     Route: 048

REACTIONS (7)
  - DISTURBANCE IN ATTENTION [None]
  - OFF LABEL USE [None]
  - RESTLESSNESS [None]
  - DRUG ADMINISTRATION ERROR [None]
  - PRODUCT QUALITY ISSUE [None]
  - DRUG INEFFECTIVE [None]
  - DRUG PRESCRIBING ERROR [None]
